FAERS Safety Report 20647859 (Version 1)
Quarter: 2022Q1

REPORT INFORMATION
  Report Type: Report from Study
  Country: KR (occurrence: KR)
  Receive Date: 20220329
  Receipt Date: 20220329
  Transmission Date: 20220423
  Serious: Yes (Hospitalization)
  Sender: FDA-Public Use
  Company Number: KR-GLAXOSMITHKLINE-KR2022GSK055518

PATIENT
  Age: 67 Year
  Sex: Male
  Weight: 65 kg

DRUGS (4)
  1. FLUTICASONE FUROATE\UMECLIDINIUM BROMIDE\VILANTEROL TRIFENATATE [Suspect]
     Active Substance: FLUTICASONE FUROATE\UMECLIDINIUM BROMIDE\VILANTEROL TRIFENATATE
     Indication: Chronic obstructive pulmonary disease
     Dosage: UNK UNK, 1D
     Route: 055
     Dates: start: 20210913
  2. MUTERAN CAPSULE [Concomitant]
     Indication: Chronic obstructive pulmonary disease
     Dosage: 200 MG, BID
     Route: 048
     Dates: start: 20190723
  3. ESOMEZOL CAPSULE [Concomitant]
     Indication: Gastrooesophageal reflux disease
     Dosage: 200 MG, 1D
     Route: 048
     Dates: start: 20190723
  4. URSA TABLET [Concomitant]
     Indication: Hepatic enzyme abnormal
     Dosage: 300 MG, BID
     Route: 048

REACTIONS (1)
  - Gastric adenoma [Recovered/Resolved]

NARRATIVE: CASE EVENT DATE: 20220210
